FAERS Safety Report 5965847-9 (Version None)
Quarter: 2008Q4

REPORT INFORMATION
  Report Type: 
  Country: None (occurrence: None)
  Receive Date: 20081125
  Receipt Date: 20081114
  Transmission Date: 20090506
  Serious: Yes (Death)
  Sender: FDA-Public Use
  Company Number: US-BIOGENIDEC-2008BI030844

PATIENT
  Age: 24 Year
  Sex: Female
  Weight: 87 kg

DRUGS (5)
  1. TYSABRI [Suspect]
     Indication: MULTIPLE SCLEROSIS
     Route: 042
     Dates: start: 20071015
  2. COREG [Concomitant]
     Indication: CARDIAC FAILURE CONGESTIVE
  3. CAPTOPRIL [Concomitant]
     Indication: CARDIAC FAILURE CONGESTIVE
  4. PRINIVIL [Concomitant]
     Indication: CARDIAC FAILURE CONGESTIVE
  5. BUMEX [Concomitant]
     Indication: CARDIAC FAILURE CONGESTIVE

REACTIONS (2)
  - CARDIAC FAILURE CONGESTIVE [None]
  - FALL [None]
